FAERS Safety Report 16835775 (Version 2)
Quarter: 2019Q4

REPORT INFORMATION
  Report Type: Spontaneous
  Country: NL (occurrence: NL)
  Receive Date: 20190920
  Receipt Date: 20191007
  Transmission Date: 20200122
  Serious: Yes (Life-Threatening, Hospitalization, Other)
  Sender: FDA-Public Use
  Company Number: NL-ALLERGAN-1938419US

PATIENT
  Sex: Male

DRUGS (6)
  1. HYDROCHLOROTHIAZIDE UNK [Suspect]
     Active Substance: HYDROCHLOROTHIAZIDE
     Indication: HYPERINSULINISM
     Dosage: RESTARED WITH PREVIOUS DOSAGE
     Route: 048
  2. HYDROCHLOROTHIAZIDE UNK [Interacting]
     Active Substance: HYDROCHLOROTHIAZIDE
     Dosage: 2 MG/KG, QD (EVERY 24 H)
     Route: 048
  3. DIAZOXIDE [Interacting]
     Active Substance: DIAZOXIDE
     Dosage: 10 MG/KG, QD (MAXIMUM DOSE)
     Route: 048
  4. HYDROCHLOROTHIAZIDE UNK [Interacting]
     Active Substance: HYDROCHLOROTHIAZIDE
     Dosage: 3 MG/KG, QD (MAXIMUM DOSE)
     Route: 048
  5. DIAZOXIDE [Interacting]
     Active Substance: DIAZOXIDE
     Indication: HYPERINSULINISM
     Dosage: RESTARED WITH PREVIOUS DOSAGE
     Route: 048
  6. DIAZOXIDE [Interacting]
     Active Substance: DIAZOXIDE
     Dosage: 5 MG/KG, QD
     Route: 048

REACTIONS (7)
  - Off label use [Unknown]
  - Petechiae [Unknown]
  - Haematemesis [Unknown]
  - Drug interaction [Unknown]
  - Rectal haemorrhage [Unknown]
  - Epistaxis [Unknown]
  - Thrombocytopenia [Recovered/Resolved]
